FAERS Safety Report 23979370 (Version 2)
Quarter: 2025Q1

REPORT INFORMATION
  Report Type: Report from Study
  Country: IN (occurrence: IN)
  Receive Date: 20240615
  Receipt Date: 20250306
  Transmission Date: 20250409
  Serious: Yes (Other)
  Sender: NOVARTIS
  Company Number: IN-002147023-NVSC2021IN084760

PATIENT
  Age: 49 Year
  Sex: Female

DRUGS (4)
  1. TASIGNA [Suspect]
     Active Substance: NILOTINIB
     Indication: Chronic myeloid leukaemia
     Dosage: 400 MG, BID
     Route: 048
     Dates: start: 20191225
  2. TASIGNA [Suspect]
     Active Substance: NILOTINIB
     Dosage: 400 MG, BID
     Route: 048
     Dates: start: 20191226
  3. TASIGNA [Suspect]
     Active Substance: NILOTINIB
     Dosage: 200 MG, BID
     Route: 048
     Dates: start: 20210407
  4. BOSUTINIB [Concomitant]
     Active Substance: BOSUTINIB
     Indication: Product used for unknown indication
     Route: 065

REACTIONS (9)
  - Chronic myeloid leukaemia [Not Recovered/Not Resolved]
  - Malignant neoplasm progression [Not Recovered/Not Resolved]
  - Pancytopenia [Unknown]
  - Drug intolerance [Unknown]
  - Vomiting [Unknown]
  - Diarrhoea [Unknown]
  - Pallor [Unknown]
  - Treatment failure [Unknown]
  - Off label use [Unknown]

NARRATIVE: CASE EVENT DATE: 20191226
